FAERS Safety Report 19754518 (Version 2)
Quarter: 2021Q3

REPORT INFORMATION
  Report Type: Spontaneous
  Country: DE (occurrence: DE)
  Receive Date: 20210827
  Receipt Date: 20210902
  Transmission Date: 20211014
  Serious: Yes (Hospitalization, Other)
  Sender: FDA-Public Use
  Company Number: NVSC2021DE185890

PATIENT
  Age: 50 Year
  Sex: Male
  Weight: 75 kg

DRUGS (1)
  1. ACETYLSALICYLIC ACID [Suspect]
     Active Substance: ASPIRIN
     Indication: PRODUCT USED FOR UNKNOWN INDICATION
     Dosage: 100 MG, AS NECESSARY (BEDARF)
     Route: 065

REACTIONS (12)
  - Tachycardia [Unknown]
  - Generalised oedema [Unknown]
  - Oedema peripheral [Unknown]
  - Duodenal ulcer perforation [Unknown]
  - Blood loss anaemia [Unknown]
  - Haematochezia [Unknown]
  - Electrocardiogram abnormal [Unknown]
  - Incorrect dose administered [Unknown]
  - Inappropriate schedule of product administration [Unknown]
  - Abdominal pain [Unknown]
  - General physical health deterioration [Unknown]
  - Dyspnoea [Unknown]
